FAERS Safety Report 13963988 (Version 1)
Quarter: 2017Q3

REPORT INFORMATION
  Report Type: Spontaneous
  Country: US (occurrence: US)
  Receive Date: 20170913
  Receipt Date: 20170913
  Transmission Date: 20171128
  Serious: Yes (Hospitalization, Other)
  Sender: FDA-Public Use
  Company Number: US-SCIEGEN PHARMACEUTICALS INC-2017SCILIT00572

PATIENT
  Age: 19 Year
  Sex: Male

DRUGS (1)
  1. BUPROPION HYDROCHLORIDE. [Suspect]
     Active Substance: BUPROPION HYDROCHLORIDE
     Indication: DEPRESSION
     Dosage: 28 PILLS
     Route: 065

REACTIONS (4)
  - Loss of consciousness [Unknown]
  - Clonic convulsion [Unknown]
  - Intentional overdose [Unknown]
  - Sinus tachycardia [Unknown]
